FAERS Safety Report 12450856 (Version 1)
Quarter: 2016Q2

REPORT INFORMATION
  Report Type: Spontaneous
  Country: US (occurrence: US)
  Receive Date: 20160609
  Receipt Date: 20160609
  Transmission Date: 20160815
  Serious: Yes (Other)
  Sender: FDA-Public Use
  Company Number: US-PSKUSFDA-2016-US-0260

PATIENT
  Age: 42 Year
  Sex: Female
  Weight: 96.62 kg

DRUGS (1)
  1. SANCUSO [Suspect]
     Active Substance: GRANISETRON
     Indication: PROPHYLAXIS OF NAUSEA AND VOMITING
     Dosage: 1 PATCH REMOVE AFTER 3 DAYS
     Dates: start: 2014, end: 20160519

REACTIONS (2)
  - Neoplasm malignant [None]
  - Metastasis [None]

NARRATIVE: CASE EVENT DATE: 2015
